FAERS Safety Report 5683075-1 (Version None)
Quarter: 2008Q1

REPORT INFORMATION
  Report Type: 
  Country: None (occurrence: None)
  Receive Date: 20080327
  Receipt Date: 20080320
  Transmission Date: 20080703
  Serious: Yes (Life-Threatening)
  Sender: FDA-Public Use
  Company Number: BE-BRISTOL-MYERS SQUIBB COMPANY-14055941

PATIENT
  Age: 72 Year

DRUGS (4)
  1. CETUXIMAB [Suspect]
     Indication: COLON CANCER
     Dosage: STRENGTH:5MG/ML.400MG/M2X1 10JUL07-10JUL07,250MG/M2 FROM UNKNOWN-16JAN08.RECENT INFUSION ON 15JAN08
     Route: 041
     Dates: start: 20070710, end: 20080116
  2. OXALIPLATIN [Suspect]
     Indication: COLON CANCER
     Dosage: MOST RECENT INFUSION 18DEC07
     Route: 042
     Dates: start: 20070710, end: 20080116
  3. FLUOROURACIL [Suspect]
     Indication: COLON CANCER
     Dosage: MOST RECENT INFUSION 18DEC07
     Route: 042
     Dates: start: 20070710, end: 20080116
  4. FOLINIC ACID [Suspect]
     Indication: COLON CANCER
     Dosage: MOST RECENT INFUSION 18DEC07
     Route: 042
     Dates: start: 20070710, end: 20080116

REACTIONS (1)
  - ENDOCARDITIS BACTERIAL [None]
